FAERS Safety Report 9682356 (Version 1)
Quarter: 2013Q4

REPORT INFORMATION
  Report Type: Spontaneous
  Country: US (occurrence: US)
  Receive Date: 20131112
  Receipt Date: 20131112
  Transmission Date: 20140711
  Serious: No
  Sender: FDA-Public Use
  Company Number: US-BIOGENIDEC-2013BI100426

PATIENT
  Age: 26 Year
  Sex: Female

DRUGS (1)
  1. AVONEX [Suspect]
     Indication: MULTIPLE SCLEROSIS
     Route: 030
     Dates: start: 20120309

REACTIONS (7)
  - Vertigo [Not Recovered/Not Resolved]
  - Neuropathy peripheral [Unknown]
  - Band sensation [Unknown]
  - Seasonal allergy [Unknown]
  - Decreased immune responsiveness [Unknown]
  - Pruritus generalised [Unknown]
  - Pain [Unknown]
